FAERS Safety Report 25567656 (Version 1)
Quarter: 2025Q3

REPORT INFORMATION
  Report Type: Spontaneous
  Country: US (occurrence: None)
  Receive Date: 20250716
  Receipt Date: 20250716
  Transmission Date: 20251021
  Serious: No
  Sender: FDA-CTU
  Company Number: None

PATIENT
  Age: 89 Year
  Sex: Female
  Weight: 65.25 kg

DRUGS (12)
  1. MIRABEGRON [Suspect]
     Active Substance: MIRABEGRON
     Indication: Hypertonic bladder
     Dosage: 1 TABLET AT BEDTIME ORAL
     Route: 048
     Dates: start: 20250301, end: 20250701
  2. METFORMIN [Concomitant]
     Active Substance: METFORMIN HYDROCHLORIDE
  3. ATORVASTATIN [Concomitant]
     Active Substance: ATORVASTATIN
  4. LISINOPRIL [Concomitant]
     Active Substance: LISINOPRIL
  5. AMLODIPINE BESYLATE [Concomitant]
     Active Substance: AMLODIPINE BESYLATE
  6. fill strength aspirin [Concomitant]
  7. cakcium citrate [Concomitant]
  8. VITAMIN D [Concomitant]
     Active Substance: VITAMIN D NOS
  9. MINERALS\VITAMINS [Concomitant]
     Active Substance: MINERALS\VITAMINS
  10. IRON [Concomitant]
     Active Substance: IRON
  11. TYLENOL [Concomitant]
     Active Substance: ACETAMINOPHEN
  12. FLUTICASONE [Concomitant]
     Active Substance: FLUTICASONE

REACTIONS (2)
  - Eye pain [None]
  - Constipation [None]

NARRATIVE: CASE EVENT DATE: 20250710
